FAERS Safety Report 8566283-1 (Version None)
Quarter: 2012Q3

REPORT INFORMATION
  Report Type: 
  Country: None (occurrence: None)
  Receive Date: 20120803
  Receipt Date: 20110817
  Transmission Date: 20120928
  Serious: Yes (Other)
  Sender: FDA-Public Use
  Company Number: US-ABBOTT-11P-163-0847505-00

PATIENT
  Sex: Male
  Weight: 81.72 kg

DRUGS (1)
  1. NIASPAN [Suspect]
     Indication: BLOOD CHOLESTEROL INCREASED
     Route: 048
     Dates: start: 20000101, end: 20000101

REACTIONS (4)
  - SKIN BURNING SENSATION [None]
  - ERYTHEMA [None]
  - SKIN REACTION [None]
  - INSOMNIA [None]
